FAERS Safety Report 9772353 (Version 1)
Quarter: 2013Q4

REPORT INFORMATION
  Report Type: Spontaneous
  Country: US (occurrence: None)
  Receive Date: 20131218
  Receipt Date: 20131218
  Transmission Date: 20140711
  Serious: Yes (Hospitalization)
  Sender: FDA-Public Use
  Company Number: None

PATIENT
  Age: 59 Year
  Sex: Female
  Weight: 111.59 kg

DRUGS (11)
  1. ONDANSETRON [Suspect]
     Indication: BACK PAIN
     Route: 042
     Dates: start: 20131126
  2. ONDANSETRON [Suspect]
     Indication: ABDOMINAL PAIN
     Route: 042
     Dates: start: 20131126
  3. MORPHINE SULFATE [Suspect]
     Indication: NEPHROLITHIASIS
     Route: 042
  4. BIOTIN [Concomitant]
  5. CALCIUM [Concomitant]
  6. VITAMIN D [Concomitant]
  7. B-12 [Concomitant]
  8. D-3 [Concomitant]
  9. NIACIN [Concomitant]
  10. MVI [Concomitant]
  11. PATANOL [Concomitant]

REACTIONS (1)
  - Chest pain [None]
